FAERS Safety Report 14472580 (Version 3)
Quarter: 2018Q1

REPORT INFORMATION
  Report Type: Spontaneous
  Country: BR (occurrence: BR)
  Receive Date: 20180201
  Receipt Date: 20180314
  Transmission Date: 20180509
  Serious: Yes (Other)
  Sender: FDA-Public Use
  Company Number: PHHY2018BR013764

PATIENT
  Sex: Male
  Weight: 80 kg

DRUGS (1)
  1. EXELON PATCH [Suspect]
     Active Substance: RIVASTIGMINE
     Indication: CEREBRAL DISORDER
     Dosage: 9.5 MG, QD (PATCH 10 (CM2), WITH 18 MG OF RIVASTIGMINE BASE)
     Route: 062

REACTIONS (5)
  - Parkinson^s disease [Unknown]
  - Wrong technique in product usage process [Unknown]
  - Condition aggravated [Unknown]
  - Malaise [Unknown]
  - Product adhesion issue [Unknown]
